FAERS Safety Report 7130282-7 (Version None)
Quarter: 2010Q4

REPORT INFORMATION
  Report Type: 
  Country: None (occurrence: None)
  Receive Date: 20101201
  Receipt Date: 20101117
  Transmission Date: 20110411
  Serious: Yes (Other)
  Sender: FDA-Public Use
  Company Number: PHHY2010US78351

PATIENT
  Sex: Female
  Weight: 40.816 kg

DRUGS (3)
  1. EXELON [Suspect]
     Indication: DEMENTIA
     Dosage: 1 PATCH ON EVERY WEEK OR EVERY 6 DAYS
  2. SINEMET [Concomitant]
     Dosage: UNK
  3. ANTIDEPRESSANTS [Concomitant]

REACTIONS (9)
  - CONFUSIONAL STATE [None]
  - DECREASED APPETITE [None]
  - DEPRESSION [None]
  - FEELING ABNORMAL [None]
  - SPEECH DISORDER [None]
  - STUPOR [None]
  - VISION BLURRED [None]
  - WEIGHT DECREASED [None]
  - WRONG TECHNIQUE IN DRUG USAGE PROCESS [None]
